FAERS Safety Report 9316073 (Version 1)
Quarter: 2013Q2

REPORT INFORMATION
  Report Type: Spontaneous
  Country: US (occurrence: US)
  Receive Date: 20130530
  Receipt Date: 20130530
  Transmission Date: 20140414
  Serious: No
  Sender: FDA-Public Use
  Company Number: US-BIOGENIDEC-2013BI047902

PATIENT
  Sex: 0

DRUGS (5)
  1. TYSABRI [Suspect]
     Indication: PRODUCT USED FOR UNKNOWN INDICATION
  2. AVONEX [Concomitant]
     Indication: MULTIPLE SCLEROSIS
  3. BETASERON [Concomitant]
  4. REBIF [Concomitant]
  5. GILENYA [Concomitant]

REACTIONS (2)
  - Depressed mood [Unknown]
  - Hypersensitivity [Unknown]
